FAERS Safety Report 16206810 (Version 1)
Quarter: 2019Q2

REPORT INFORMATION
  Report Type: Spontaneous
  Country: US (occurrence: US)
  Receive Date: 20190416
  Receipt Date: 20190416
  Transmission Date: 20190711
  Serious: No
  Sender: FDA-Public Use
  Company Number: None

PATIENT
  Age: 55 Year
  Sex: Female
  Weight: 77.11 kg

DRUGS (1)
  1. SOMADERM HGH IRANSDERMAL GEL [Suspect]
     Active Substance: HOMEOPATHICS

REACTIONS (1)
  - Hepatic enzyme increased [None]
